FAERS Safety Report 6065698-3 (Version None)
Quarter: 2009Q1

REPORT INFORMATION
  Report Type: 
  Country: None (occurrence: None)
  Receive Date: 20090202
  Receipt Date: 20090115
  Transmission Date: 20090719
  Serious: Yes (Disabling)
  Sender: FDA-Public Use
  Company Number: 8041293

PATIENT
  Age: 6 Year
  Sex: Male
  Weight: 28 kg

DRUGS (3)
  1. XYZAL [Suspect]
     Indication: ANTIEMETIC SUPPORTIVE CARE
     Dosage: 5 GTT 2/D PO
     Route: 048
     Dates: start: 20050531, end: 20050727
  2. XYZAL [Suspect]
     Indication: RHINITIS ALLERGIC
     Dosage: 5 GTT 2/D PO
     Route: 048
     Dates: start: 20050531, end: 20050727
  3. TETRAVAC /00019401/ [Suspect]
     Indication: IMMUNISATION
     Dosage: 1 DF ONCE IM
     Route: 030
     Dates: start: 20050531, end: 20050531

REACTIONS (13)
  - ABDOMINAL RIGIDITY [None]
  - ASTHENIA [None]
  - DISTURBANCE IN SOCIAL BEHAVIOUR [None]
  - DYSPNOEA [None]
  - DYSSTASIA [None]
  - GASTROINTESTINAL DISORDER [None]
  - GASTROINTESTINAL MOTILITY DISORDER [None]
  - MUSCLE SPASMS [None]
  - NAUSEA [None]
  - OCULOGYRIC CRISIS [None]
  - PARAESTHESIA [None]
  - PSYCHOMOTOR HYPERACTIVITY [None]
  - SOCIAL AVOIDANT BEHAVIOUR [None]
